FAERS Safety Report 5899473-7 (Version None)
Quarter: 2008Q3

REPORT INFORMATION
  Report Type: 
  Country: None (occurrence: None)
  Receive Date: 20080926
  Receipt Date: 20080919
  Transmission Date: 20090109
  Serious: Yes (Death, Hospitalization)
  Sender: FDA-Public Use
  Company Number: JP-JNJFOC-20080706547

PATIENT
  Sex: Female
  Weight: 37 kg

DRUGS (10)
  1. ITRIZOLE [Suspect]
     Indication: FEBRILE NEUTROPENIA
     Route: 041
  2. ITRIZOLE [Suspect]
     Route: 048
  3. CARBENIN [Suspect]
     Indication: FEBRILE NEUTROPENIA
     Route: 041
  4. MAXIPIME [Concomitant]
     Indication: FEBRILE NEUTROPENIA
     Route: 042
  5. SOLU-MEDROL [Concomitant]
     Indication: LEUKAEMIC INFILTRATION PULMONARY
     Route: 042
  6. SOLU-MEDROL [Concomitant]
     Indication: ACUTE MYELOID LEUKAEMIA
     Route: 042
  7. DUROTEP PATCH [Concomitant]
     Indication: CANCER PAIN
     Route: 062
  8. SIGMART [Concomitant]
     Indication: ANGINA PECTORIS
     Route: 048
  9. DIOVAN [Concomitant]
     Indication: HYPERTENSION
     Route: 048
  10. FRANDOL S [Concomitant]
     Indication: ANGINA PECTORIS
     Route: 062

REACTIONS (8)
  - BLOOD LACTATE DEHYDROGENASE INCREASED [None]
  - BLOOD UREA INCREASED [None]
  - GAMMA-GLUTAMYLTRANSFERASE INCREASED [None]
  - HYPOCHLORAEMIA [None]
  - HYPOKALAEMIA [None]
  - LEUKAEMIA [None]
  - LIVER DISORDER [None]
  - WHITE BLOOD CELL COUNT INCREASED [None]
